FAERS Safety Report 10247772 (Version 2)
Quarter: 2014Q2

REPORT INFORMATION
  Report Type: Report from Study
  Country: ES (occurrence: ES)
  Receive Date: 20140619
  Receipt Date: 20140627
  Transmission Date: 20141212
  Serious: Yes (Other)
  Sender: FDA-Public Use
  Company Number: ES-VERTEX PHARMACEUTICALS (CANADA)-2014-002765

PATIENT
  Sex: 0

DRUGS (3)
  1. TELAPREVIR [Suspect]
     Indication: HEPATITIS C
     Route: 048
  2. PEGINTERFERON ALFA [Suspect]
     Indication: HEPATITIS C
     Route: 065
  3. RIBAVIRIN [Suspect]
     Indication: HEPATITIS C
     Route: 065

REACTIONS (1)
  - Renal injury [Unknown]
